FAERS Safety Report 10017662 (Version 1)
Quarter: 2014Q1

REPORT INFORMATION
  Report Type: Spontaneous
  Country: US (occurrence: US)
  Receive Date: 20140318
  Receipt Date: 20140318
  Transmission Date: 20141002
  Serious: No
  Sender: FDA-Public Use
  Company Number: US-BAYER-2014-040176

PATIENT
  Age: 21 Year
  Sex: Female

DRUGS (1)
  1. ALEVE CAPLET [Suspect]
     Indication: DYSMENORRHOEA
     Dosage: 2 DF, UNK (AND DOSE OF 1 ALEVE SOMETIME AFTER 8 HOURS)
     Route: 048

REACTIONS (1)
  - Drug ineffective [None]
